FAERS Safety Report 8385922-1 (Version None)
Quarter: 2012Q2

REPORT INFORMATION
  Report Type: 
  Country: None (occurrence: None)
  Receive Date: 20120523
  Receipt Date: 20120510
  Transmission Date: 20120825
  Serious: Yes (Hospitalization)
  Sender: FDA-Public Use
  Company Number: 2012SP025251

PATIENT
  Age: 26 Year
  Sex: Female

DRUGS (2)
  1. DESOGESTRE/ETHINYL ESTRADIOL [Suspect]
     Indication: PRODUCT USED FOR UNKNOWN INDICATION
  2. MINULET (FEMODENE) [Suspect]
     Indication: PRODUCT USED FOR UNKNOWN INDICATION

REACTIONS (10)
  - CEREBRAL THROMBOSIS [None]
  - WEIGHT DECREASED [None]
  - ASTHENIA [None]
  - PHOTOPHOBIA [None]
  - REFUSAL OF TREATMENT BY PATIENT [None]
  - FALL [None]
  - GASTROINTESTINAL DISORDER [None]
  - VISUAL IMPAIRMENT [None]
  - MEMORY IMPAIRMENT [None]
  - MOTOR DYSFUNCTION [None]
